FAERS Safety Report 6657128-5 (Version None)
Quarter: 2010Q1

REPORT INFORMATION
  Report Type: 
  Country: None (occurrence: None)
  Receive Date: 20100330
  Receipt Date: 20100319
  Transmission Date: 20100710
  Serious: Yes (Hospitalization)
  Sender: FDA-Public Use
  Company Number: US-JNJFOC-20100306100

PATIENT
  Sex: Male

DRUGS (2)
  1. HALOPERIDOL DECANOATE [Suspect]
     Indication: SCHIZOPHRENIA
     Route: 030
  2. HALOPERIDOL DECANOATE [Suspect]
     Route: 030

REACTIONS (4)
  - DEEP VEIN THROMBOSIS [None]
  - NEUROLEPTIC MALIGNANT SYNDROME [None]
  - PYREXIA [None]
  - RASH PAPULAR [None]
